FAERS Safety Report 6866452-2 (Version None)
Quarter: 2010Q2

REPORT INFORMATION
  Report Type: 
  Country: None (occurrence: None)
  Receive Date: 20100602
  Receipt Date: 20091103
  Transmission Date: 20101027
  Serious: Yes (Other)
  Sender: FDA-Public Use
  Company Number: 214087USA

PATIENT
  Sex: Female

DRUGS (1)
  1. AVIANE-28 [Suspect]
     Dosage: 0.15 MG/0.03 MG
     Dates: start: 20090201

REACTIONS (4)
  - BREAST CANCER IN SITU [None]
  - MENORRHAGIA [None]
  - METRORRHAGIA [None]
  - OESTROGEN RECEPTOR ASSAY POSITIVE [None]
